FAERS Safety Report 4915598-4 (Version None)
Quarter: 2006Q1

REPORT INFORMATION
  Report Type: 
  Country: None (occurrence: None)
  Receive Date: 20060217
  Receipt Date: 20051117
  Transmission Date: 20060701
  Serious: Yes (Hospitalization, Disabling)
  Sender: FDA-Public Use
  Company Number: US-MERCK-0511USA03151

PATIENT
  Age: 56 Year
  Sex: Male
  Weight: 77 kg

DRUGS (12)
  1. VIOXX [Suspect]
     Indication: BACK PAIN
     Route: 048
     Dates: start: 20020625, end: 20030511
  2. GLUCOPHAGE [Concomitant]
     Route: 065
  3. PRAVACHOL [Concomitant]
     Route: 065
  4. PRILOSEC [Concomitant]
     Route: 065
  5. NORVASC [Concomitant]
     Route: 065
     Dates: end: 20030601
  6. ATENOLOL [Concomitant]
     Route: 065
  7. FLONASE [Concomitant]
     Route: 065
  8. HYDROCODONE BITARTRATE + ACETAMINOPHEN [Concomitant]
     Route: 065
  9. SKELAXIN [Concomitant]
     Route: 065
  10. LOPRESSOR [Concomitant]
     Route: 065
     Dates: start: 20030101, end: 20030501
  11. ASPIRIN [Concomitant]
     Route: 065
     Dates: start: 20021123
  12. PLAVIX [Concomitant]
     Route: 065
     Dates: start: 20021123, end: 20030320

REACTIONS (7)
  - BLOOD CHOLESTEROL INCREASED [None]
  - DEPRESSION [None]
  - EMOTIONAL DISTRESS [None]
  - HYPERTENSION [None]
  - MYOCARDIAL INFARCTION [None]
  - ROTATOR CUFF SYNDROME [None]
  - TENDON RUPTURE [None]
